FAERS Safety Report 18910081 (Version 1)
Quarter: 2021Q1

REPORT INFORMATION
  Report Type: Spontaneous
  Country: US (occurrence: US)
  Receive Date: 20210218
  Receipt Date: 20210218
  Transmission Date: 20210420
  Serious: Yes (Other)
  Sender: FDA-Public Use
  Company Number: None

PATIENT
  Age: 55 Year
  Sex: Male
  Weight: 73 kg

DRUGS (17)
  1. ACETAMINOPHEN. [Concomitant]
     Active Substance: ACETAMINOPHEN
  2. FAMOTIDINE. [Concomitant]
     Active Substance: FAMOTIDINE
  3. GABAPENTIN. [Concomitant]
     Active Substance: GABAPENTIN
  4. LOSARTAN. [Concomitant]
     Active Substance: LOSARTAN
  5. ACYCLOVIR. [Concomitant]
     Active Substance: ACYCLOVIR
  6. DIPHENHYDRAMINE. [Concomitant]
     Active Substance: DIPHENHYDRAMINE
  7. METHYLPREDNISOLONE. [Concomitant]
     Active Substance: METHYLPREDNISOLONE
  8. LISINOPRIL. [Concomitant]
     Active Substance: LISINOPRIL
  9. BACLOFEN. [Concomitant]
     Active Substance: BACLOFEN
  10. DOCUSATE SODIUM. [Concomitant]
     Active Substance: DOCUSATE SODIUM
  11. ASCORBIC ACID. [Concomitant]
     Active Substance: ASCORBIC ACID
  12. ASPIRIN. [Concomitant]
     Active Substance: ASPIRIN
  13. CHOLECALCIFEROL [Concomitant]
     Active Substance: CHOLECALCIFEROL
  14. LEMTRADA [Suspect]
     Active Substance: ALEMTUZUMAB
     Indication: RELAPSING-REMITTING MULTIPLE SCLEROSIS
     Dosage: ?          OTHER FREQUENCY:X5DAYS;?
     Route: 042
     Dates: start: 20171211, end: 20181228
  15. LORATADINE. [Concomitant]
     Active Substance: LORATADINE
  16. SILDENAFIL. [Concomitant]
     Active Substance: SILDENAFIL
  17. ALPRAZOLAM. [Concomitant]
     Active Substance: ALPRAZOLAM

REACTIONS (1)
  - Blood thyroid stimulating hormone increased [None]

NARRATIVE: CASE EVENT DATE: 20201229
